FAERS Safety Report 14142503 (Version 1)
Quarter: 2017Q4

REPORT INFORMATION
  Report Type: Spontaneous
  Country: AU (occurrence: AU)
  Receive Date: 20171030
  Receipt Date: 20171030
  Transmission Date: 20180321
  Serious: Yes (Life-Threatening)
  Sender: FDA-Public Use
  Company Number: AU-TEVA-818375ISR

PATIENT
  Weight: 48 kg

DRUGS (2)
  1. ROCON [Suspect]
     Active Substance: ROCURONIUM BROMIDE
     Indication: SURGERY
     Dosage: 50 MILLIGRAM DAILY;
     Route: 042
     Dates: start: 20171011, end: 20171011
  2. PROPOFOL. [Concomitant]
     Active Substance: PROPOFOL
     Route: 042

REACTIONS (2)
  - Drug effect incomplete [Recovered/Resolved]
  - Muscle twitching [Recovered/Resolved]

NARRATIVE: CASE EVENT DATE: 20171011
